FAERS Safety Report 23126935 (Version 2)
Quarter: 2023Q4

REPORT INFORMATION
  Report Type: Report from Study
  Country: US (occurrence: US)
  Receive Date: 20231030
  Receipt Date: 20231211
  Transmission Date: 20240109
  Serious: Yes (Hospitalization, Other)
  Sender: FDA-Public Use
  Company Number: US-002147023-NVSC2022US100692

PATIENT
  Age: 19 Year
  Sex: Female
  Weight: 74.83 kg

DRUGS (15)
  1. TREPROSTINIL [Suspect]
     Active Substance: TREPROSTINIL
     Dosage: 16 NG/KG/MIN, CONT, 1 MG/ML
     Route: 042
  2. TREPROSTINIL [Suspect]
     Active Substance: TREPROSTINIL
     Indication: Pulmonary arterial hypertension
     Dosage: 12 NG/KG/MIN, CONT, 1 MG/ML
     Route: 042
     Dates: start: 20220419
  3. TREPROSTINIL [Suspect]
     Active Substance: TREPROSTINIL
     Dosage: 30 NG/KG/ MIN, CONT (2.5 MG/ML)
     Route: 042
  4. TREPROSTINIL [Suspect]
     Active Substance: TREPROSTINIL
     Dosage: 36 NG/KG/ MIN, CONT (2.5 MG/ML)
     Route: 042
  5. TREPROSTINIL [Suspect]
     Active Substance: TREPROSTINIL
     Dosage: 40 NG/KG/ MIN, CONT (2.5 MG/ML)
     Route: 042
  6. TREPROSTINIL [Suspect]
     Active Substance: TREPROSTINIL
     Dosage: 38.4 NG/KG/MIN CONT
     Route: 042
     Dates: start: 20220419
  7. TREPROSTINIL [Suspect]
     Active Substance: TREPROSTINIL
     Dosage: 38.4 NG/KG/MIN, CONT
     Route: 042
     Dates: start: 20230419
  8. TREPROSTINIL [Suspect]
     Active Substance: TREPROSTINIL
     Dosage: 0.012 UG/KG, CONT, 1 MG/ML
     Route: 058
     Dates: end: 20220427
  9. TREPROSTINIL [Suspect]
     Active Substance: TREPROSTINIL
     Dosage: 0.014 UG/KG, CONT, 1 MG/ML
     Route: 058
     Dates: start: 20220427
  10. TREPROSTINIL [Suspect]
     Active Substance: TREPROSTINIL
     Dosage: 14 NG/KG/MIN, CONT, 1 MG/ML
     Route: 042
  11. TREPROSTINIL [Suspect]
     Active Substance: TREPROSTINIL
     Dosage: UNK
     Route: 058
  12. VANCOMYCIN [Suspect]
     Active Substance: VANCOMYCIN
     Indication: Product used for unknown indication
     Dosage: UNK
     Route: 065
  13. LETAIRIS [Concomitant]
     Active Substance: AMBRISENTAN
     Indication: Product used for unknown indication
     Dosage: UNK
     Route: 065
  14. REMODULIN [Concomitant]
     Active Substance: TREPROSTINIL
     Indication: Product used for unknown indication
     Dosage: UNK
     Route: 065
  15. TADALAFIL [Concomitant]
     Active Substance: TADALAFIL
     Indication: Product used for unknown indication
     Dosage: UNK
     Route: 065

REACTIONS (16)
  - Vascular device infection [Unknown]
  - Pyrexia [Unknown]
  - Abdominal discomfort [Unknown]
  - Fatigue [Not Recovered/Not Resolved]
  - Malaise [Unknown]
  - Myalgia [Unknown]
  - Haematological infection [Unknown]
  - Nasal congestion [Unknown]
  - Weight increased [Unknown]
  - Sinusitis [Unknown]
  - Pharyngitis streptococcal [Unknown]
  - Chest discomfort [Unknown]
  - Headache [Unknown]
  - Vomiting [Recovered/Resolved]
  - Nausea [Unknown]
  - Drug hypersensitivity [Unknown]

NARRATIVE: CASE EVENT DATE: 20220427
